FAERS Safety Report 6269614-0 (Version None)
Quarter: 2009Q3

REPORT INFORMATION
  Report Type: 
  Country: None (occurrence: None)
  Receive Date: 20090714
  Receipt Date: 20090701
  Transmission Date: 20100115
  Serious: Yes (Hospitalization)
  Sender: FDA-Public Use
  Company Number: 231368K08USA

PATIENT
  Age: 25 Year
  Sex: Male

DRUGS (2)
  1. REBIF [Suspect]
     Indication: MULTIPLE SCLEROSIS
     Dosage: 44 MCG, 3 IN 1 WEEKS, SUBCUTANEOUS
     Route: 058
     Dates: start: 20080827, end: 20081001
  2. TYLENOL [Concomitant]

REACTIONS (11)
  - HEADACHE [None]
  - HYPOAESTHESIA [None]
  - LUNG ABSCESS [None]
  - NO THERAPEUTIC RESPONSE [None]
  - PARAESTHESIA [None]
  - PNEUMONIA [None]
  - POST PROCEDURAL COMPLICATION [None]
  - PULMONARY SARCOIDOSIS [None]
  - PULMONARY THROMBOSIS [None]
  - SARCOIDOSIS [None]
  - WEIGHT DECREASED [None]
